FAERS Safety Report 10869017 (Version 2)
Quarter: 2015Q1

REPORT INFORMATION
  Report Type: Report from Study
  Country: EG (occurrence: EG)
  Receive Date: 20150225
  Receipt Date: 20150311
  Transmission Date: 20150721
  Serious: Yes (Death, Other)
  Sender: FDA-Public Use
  Company Number: EG-SA-2015SA020736

PATIENT
  Age: 66 Year
  Sex: Male

DRUGS (1)
  1. LANTUS [Suspect]
     Active Substance: INSULIN GLARGINE
     Indication: TYPE 2 DIABETES MELLITUS
     Route: 058
     Dates: start: 20131230

REACTIONS (5)
  - Hepatic fibrosis [Fatal]
  - Coma [Unknown]
  - Pelvic fracture [Unknown]
  - Lung disorder [Fatal]
  - Accident [Unknown]

NARRATIVE: CASE EVENT DATE: 20141001
